FAERS Safety Report 6776653-X (Version None)
Quarter: 2010Q2

REPORT INFORMATION
  Report Type: 
  Country: None (occurrence: None)
  Receive Date: 20100617
  Receipt Date: 20100609
  Transmission Date: 20101027
  Serious: Yes (Hospitalization)
  Sender: FDA-Public Use
  Company Number: US-ALLERGAN-1007863US

PATIENT
  Age: 23 Year
  Sex: Female

DRUGS (6)
  1. PREDNISOLONE ACETATE [Suspect]
     Indication: CORNEAL INFILTRATES
     Dosage: 1 PERCENT GTT, BID
     Route: 047
  2. DEXAMETHASONE [Suspect]
     Indication: CORNEAL INFILTRATES
     Dosage: UNK
  3. PREDNISONE [Suspect]
     Indication: CORNEAL INFILTRATES
     Dosage: 10 MG, QD
  4. VALACYCLOVIR [Suspect]
     Dosage: 500 MG, BID
  5. OPTI-FREE REPLENISH [Concomitant]
  6. ACUVUE [Concomitant]

REACTIONS (3)
  - CORNEAL EPITHELIUM DEFECT [None]
  - CORNEAL INFILTRATES [None]
  - DRUG INEFFECTIVE [None]
